FAERS Safety Report 8882341 (Version 1)
Quarter: 2012Q4

REPORT INFORMATION
  Report Type: 
  Country: US (occurrence: US)
  Receive Date: 20121102
  Receipt Date: 20121102
  Transmission Date: 20130627
  Serious: Yes (Hospitalization, Other)
  Sender: FDA-Public Use
  Company Number: PHEH2012US021413

PATIENT
  Sex: Female

DRUGS (3)
  1. RECLAST [Suspect]
     Route: 042
     Dates: start: 20120927
  2. FOSAMAX [Suspect]
  3. HYDROCODONE [Concomitant]

REACTIONS (13)
  - Dehydration [Unknown]
  - Cellulitis [Unknown]
  - Hypophagia [Unknown]
  - Skin burning sensation [Unknown]
  - Gait disturbance [Unknown]
  - Malaise [Unknown]
  - Vomiting [Unknown]
  - Oedema peripheral [Unknown]
  - Headache [Unknown]
  - Joint swelling [Unknown]
  - Paraesthesia [Unknown]
  - Limb discomfort [Unknown]
  - Neck pain [Unknown]
